FAERS Safety Report 25825292 (Version 1)
Quarter: 2025Q3

REPORT INFORMATION
  Report Type: Spontaneous
  Country: US (occurrence: US)
  Receive Date: 20250919
  Receipt Date: 20250919
  Transmission Date: 20251020
  Serious: No
  Sender: EISAI
  Company Number: US-Eisai-EC-2025-196376

PATIENT
  Sex: Male

DRUGS (1)
  1. LEQEMBI [Suspect]
     Active Substance: LECANEMAB-IRMB
     Indication: Product used for unknown indication
     Route: 042
     Dates: start: 20250903

REACTIONS (6)
  - Influenza like illness [Unknown]
  - Nasopharyngitis [Unknown]
  - Fatigue [Unknown]
  - Somnolence [Recovered/Resolved]
  - Night sweats [Unknown]
  - Hyperhidrosis [Unknown]

NARRATIVE: CASE EVENT DATE: 20250903
